FAERS Safety Report 9130757 (Version 1)
Quarter: 2013Q1

REPORT INFORMATION
  Report Type: Spontaneous
  Country: US (occurrence: US)
  Receive Date: 20130301
  Receipt Date: 20130301
  Transmission Date: 20140127
  Serious: Yes (Death)
  Sender: FDA-Public Use
  Company Number: PHEH2013US004945

PATIENT
  Age: 90 Year
  Sex: Female

DRUGS (5)
  1. GLEEVEC [Suspect]
     Dosage: 400 MG, DAILY
     Route: 048
     Dates: start: 201201, end: 201302
  2. ZETIA [Concomitant]
     Dosage: UNK UKN, UNK
  3. METOPROLOL [Concomitant]
     Dosage: UNK UKN, UNK
  4. COZAAR [Concomitant]
     Dosage: UNK UKN, UNK
  5. PROTONIX [Concomitant]
     Dosage: UNK UKN, UNK

REACTIONS (1)
  - Death [Fatal]
